FAERS Safety Report 7435108-X (Version None)
Quarter: 2011Q2

REPORT INFORMATION
  Report Type: 
  Country: None (occurrence: None)
  Receive Date: 20110425
  Receipt Date: 20110411
  Transmission Date: 20111010
  Serious: Yes (Hospitalization)
  Sender: FDA-Public Use
  Company Number: PHHO2011AU06528

PATIENT
  Sex: Male
  Weight: 145 kg

DRUGS (3)
  1. AMLODIPINE [Suspect]
     Dosage: 10 MG, QD
     Route: 048
  2. NO TREATMENT RECEIVED [Suspect]
     Indication: HYPERTENSION
     Dosage: NO TREATMENT
  3. AMLODIPINE [Suspect]
     Indication: HYPERTENSION
     Dosage: 5 MG, QD
     Route: 048
     Dates: start: 20100917

REACTIONS (2)
  - CONCOMITANT DISEASE PROGRESSION [None]
  - SEPTIC ARTHRITIS STREPTOBACILLUS [None]
